FAERS Safety Report 6704627-3 (Version None)
Quarter: 2010Q2

REPORT INFORMATION
  Report Type: 
  Country: None (occurrence: None)
  Receive Date: 20100430
  Receipt Date: 20100427
  Transmission Date: 20101027
  Serious: Yes (Death, Hospitalization)
  Sender: FDA-Public Use
  Company Number: PHHO2010AR05811

PATIENT
  Sex: Male
  Weight: 117.5 kg

DRUGS (1)
  1. ALISKIREN ALI+TAB+CVR [Suspect]
     Indication: CARDIOVASCULAR DISORDER
     Dosage: CODE NOT BROKEN
     Route: 048
     Dates: start: 20080812

REACTIONS (4)
  - ASPIRATION BRONCHIAL [None]
  - BRONCHOSPASM [None]
  - PYREXIA [None]
  - RESPIRATORY ARREST [None]
